FAERS Safety Report 14419709 (Version 3)
Quarter: 2018Q4

REPORT INFORMATION
  Report Type: Report from Study
  Country: CA (occurrence: CA)
  Receive Date: 20180122
  Receipt Date: 20181003
  Transmission Date: 20190204
  Serious: Yes (Other)
  Sender: FDA-Public Use
  Company Number: CA-JNJFOC-20180120963

PATIENT
  Age: 56 Year
  Sex: Female
  Weight: 64 kg

DRUGS (11)
  1. PANTOPRAZOLE [Concomitant]
     Active Substance: PANTOPRAZOLE
     Route: 065
  2. SYNTHROID [Concomitant]
     Active Substance: LEVOTHYROXINE SODIUM
     Route: 065
  3. TRAMADOL. [Concomitant]
     Active Substance: TRAMADOL
     Route: 065
  4. GABAPENTIN. [Concomitant]
     Active Substance: GABAPENTIN
     Route: 065
  5. PROGESTERONE. [Concomitant]
     Active Substance: PROGESTERONE
     Route: 065
  6. DOMPERIDONE [Concomitant]
     Active Substance: DOMPERIDONE
     Route: 065
  7. CETRIZINE [Concomitant]
     Active Substance: CETIRIZINE HYDROCHLORIDE
     Route: 065
  8. PREMARIN [Concomitant]
     Active Substance: ESTROGENS, CONJUGATED
     Route: 065
  9. CLONIDINE. [Concomitant]
     Active Substance: CLONIDINE
     Route: 065
  10. REMICADE [Suspect]
     Active Substance: INFLIXIMAB
     Indication: COLITIS ULCERATIVE
     Dosage: STRENGTH = 100 MG
     Route: 042
     Dates: start: 20150805
  11. METFORMIN [Concomitant]
     Active Substance: METFORMIN HYDROCHLORIDE
     Route: 065

REACTIONS (2)
  - Renal neoplasm [Not Recovered/Not Resolved]
  - Nausea [Unknown]

NARRATIVE: CASE EVENT DATE: 201801
